FAERS Safety Report 5451075-2 (Version None)
Quarter: 2007Q3

REPORT INFORMATION
  Report Type: 
  Country: None (occurrence: None)
  Receive Date: 20070911
  Receipt Date: 20070830
  Transmission Date: 20080115
  Serious: Yes (Death)
  Sender: FDA-Public Use
  Company Number: 2007-02923

PATIENT
  Age: 63 Year
  Sex: Female

DRUGS (3)
  1. VELCADE [Suspect]
     Indication: MULTIPLE MYELOMA
     Dosage: 1.60 MG, INTRAVENOUS
     Route: 042
     Dates: start: 20070515, end: 20070605
  2. DOXORUBICIN HCL [Suspect]
     Indication: MULTIPLE MYELOMA
     Dosage: 14.00 MG, INTRAVENOUS
     Route: 042
     Dates: start: 20070515, end: 20070605
  3. DEXAMETHASONE [Suspect]
     Indication: MULTIPLE MYELOMA
     Dosage: 40.00 MEQ, INTRAVENOUS
     Route: 042
     Dates: start: 20070515, end: 20070605

REACTIONS (2)
  - DISEASE PROGRESSION [None]
  - RENAL FAILURE [None]
